FAERS Safety Report 21698612 (Version 4)
Quarter: 2023Q1

REPORT INFORMATION
  Report Type: Report from Study
  Country: US (occurrence: US)
  Receive Date: 20221208
  Receipt Date: 20230202
  Transmission Date: 20230417
  Serious: No
  Sender: FDA-Public Use
  Company Number: US-ABBVIE-4227633

PATIENT
  Sex: Male

DRUGS (2)
  1. IMBRUVICA [Suspect]
     Active Substance: IBRUTINIB
     Indication: Chronic lymphocytic leukaemia
     Dosage: 1ST REGIMEN
     Route: 048
     Dates: start: 20220919
  2. IMBRUVICA [Suspect]
     Active Substance: IBRUTINIB
     Indication: Chronic lymphocytic leukaemia
     Dosage: 2ND REGIMEN
     Route: 048

REACTIONS (8)
  - White blood cell count abnormal [Not Recovered/Not Resolved]
  - Thirst [Unknown]
  - Clumsiness [Unknown]
  - Emotional disorder [Unknown]
  - Feeling abnormal [Unknown]
  - Influenza [Unknown]
  - Feeling abnormal [Unknown]
  - Pain in extremity [Unknown]
